FAERS Safety Report 4822274-5 (Version None)
Quarter: 2005Q4

REPORT INFORMATION
  Report Type: 
  Country: None (occurrence: None)
  Receive Date: 20051107
  Receipt Date: 20051006
  Transmission Date: 20060501
  Serious: Yes (Disabling, Other)
  Sender: FDA-Public Use
  Company Number: US-MERCK-0510USA04015

PATIENT
  Age: 58 Year
  Sex: Male
  Weight: 99 kg

DRUGS (3)
  1. ZETIA [Suspect]
     Indication: HYPERCHOLESTEROLAEMIA
     Route: 048
     Dates: start: 20031201
  2. ASPIRIN [Concomitant]
     Route: 065
  3. DILACOR XR [Concomitant]
     Route: 065

REACTIONS (2)
  - COUGH [None]
  - DYSPNOEA [None]
